FAERS Safety Report 16437114 (Version 1)
Quarter: 2019Q2

REPORT INFORMATION
  Report Type: Spontaneous
  Country: US (occurrence: US)
  Receive Date: 20190615
  Receipt Date: 20190615
  Transmission Date: 20190711
  Serious: Yes (Hospitalization)
  Sender: FDA-Public Use
  Company Number: PHHY2019US133498

PATIENT
  Age: 54 Year
  Sex: Male

DRUGS (1)
  1. PAZOPANIB [Suspect]
     Active Substance: PAZOPANIB
     Indication: CLEAR CELL RENAL CELL CARCINOMA
     Dosage: 800 MG, OVER 4 DAYS
     Route: 048

REACTIONS (8)
  - Hyperkalaemia [Unknown]
  - Acute kidney injury [Unknown]
  - Hypocalcaemia [Unknown]
  - Urine output decreased [Unknown]
  - Asthenia [Unknown]
  - Hyperuricaemia [Unknown]
  - Tumour lysis syndrome [Unknown]
  - Hypophosphataemia [Unknown]
